FAERS Safety Report 5922268-2 (Version None)
Quarter: 2008Q4

REPORT INFORMATION
  Report Type: 
  Country: None (occurrence: None)
  Receive Date: 20081015
  Receipt Date: 20081002
  Transmission Date: 20090506
  Serious: Yes (Hospitalization)
  Sender: FDA-Public Use
  Company Number: CIO08016732

PATIENT
  Age: 4 Year
  Sex: Female
  Weight: 17.2 kg

DRUGS (1)
  1. NYQUIL CHILDREN'S COLD/COUGH PSEUDOPHEDRINE FREE, CHERRY FLAVOR (CHLOR [Suspect]
     Dosage: 180 ML, 1 ONLY FOR 1 DAY, ORAL
     Route: 048
     Dates: start: 20081002, end: 20081002

REACTIONS (7)
  - ACCIDENTAL DRUG INTAKE BY CHILD [None]
  - DIARRHOEA [None]
  - FAECES DISCOLOURED [None]
  - GASTRIC DISORDER [None]
  - HALLUCINATION [None]
  - HEART RATE INCREASED [None]
  - OXYGEN SATURATION DECREASED [None]
